FAERS Safety Report 10591856 (Version 1)
Quarter: 2014Q4

REPORT INFORMATION
  Report Type: Report from Study
  Country: NL (occurrence: NL)
  Receive Date: 20141119
  Receipt Date: 20141119
  Transmission Date: 20150529
  Serious: Yes (Death, Other)
  Sender: FDA-Public Use
  Company Number: NL-AMGEN-NLDSL2013094608

PATIENT
  Age: 79 Year
  Sex: Male

DRUGS (2)
  1. XGEVA [Suspect]
     Active Substance: DENOSUMAB
     Indication: PRODUCT USED FOR UNKNOWN INDICATION
     Dosage: 1.7 ML, Q4WK
     Route: 065
     Dates: start: 20120605
  2. MORPHINE [Concomitant]
     Active Substance: MORPHINE
     Dosage: 25 MUG, UNK

REACTIONS (12)
  - Chest wall mass [Unknown]
  - Vomiting [Unknown]
  - Back pain [Unknown]
  - Bone pain [Unknown]
  - Death [Fatal]
  - Sense of oppression [Unknown]
  - Diarrhoea [Unknown]
  - Dizziness [Unknown]
  - Sleep disorder [Unknown]
  - Nocturia [Unknown]
  - Hypersomnia [Unknown]
  - Musculoskeletal pain [Unknown]
